FAERS Safety Report 7717799-9 (Version None)
Quarter: 2011Q3

REPORT INFORMATION
  Report Type: 
  Country: None (occurrence: None)
  Receive Date: 20110830
  Receipt Date: 20110819
  Transmission Date: 20111222
  Serious: Yes (Other)
  Sender: FDA-Public Use
  Company Number: US-VERTEX PHARMACEUTICALS INC.-AE-2011-001074

PATIENT
  Sex: Female
  Weight: 58.566 kg

DRUGS (5)
  1. PROGESTERONE [Concomitant]
     Indication: MENOPAUSE
     Route: 048
  2. VX-950 [Suspect]
     Indication: HEPATITIS C
     Route: 048
     Dates: start: 20110525, end: 20110815
  3. COPEGUS [Suspect]
     Indication: HEPATITIS C
     Route: 048
     Dates: start: 20110525, end: 20110815
  4. COPEGUS [Suspect]
     Route: 048
     Dates: start: 20110816, end: 20110818
  5. PEGASYS [Suspect]
     Indication: HEPATITIS C
     Route: 058
     Dates: start: 20110525, end: 20110818

REACTIONS (2)
  - FACE OEDEMA [None]
  - ERYTHEMA [None]
